FAERS Safety Report 10428602 (Version 2)
Quarter: 2014Q4

REPORT INFORMATION
  Report Type: Spontaneous
  Country: CH (occurrence: None)
  Receive Date: 20140829
  Receipt Date: 20141112
  Transmission Date: 20150528
  Serious: Yes (Other)
  Sender: FDA-Public Use
  Company Number: 20140556

PATIENT
  Age: 21 Year
  Sex: Female

DRUGS (1)
  1. FERINJECT [Suspect]
     Active Substance: FERRIC CARBOXYMALTOSE
     Indication: IRON DEFICIENCY
     Route: 040
     Dates: start: 20140714, end: 20140714

REACTIONS (8)
  - Axillary pain [None]
  - Injection site swelling [None]
  - Injection site discolouration [None]
  - Injection site bruising [None]
  - Injection site haematoma [None]
  - Thrombophlebitis [None]
  - Chest pain [None]
  - Injection site extravasation [None]

NARRATIVE: CASE EVENT DATE: 20140714
